FAERS Safety Report 4786122-4 (Version None)
Quarter: 2005Q3

REPORT INFORMATION
  Report Type: 
  Country: None (occurrence: None)
  Receive Date: 20050930
  Receipt Date: 20050920
  Transmission Date: 20060218
  Serious: Yes (Other)
  Sender: FDA-Public Use
  Company Number: 2005123758

PATIENT
  Age: 65 Year
  Sex: Female

DRUGS (5)
  1. HALCION [Suspect]
     Indication: ILL-DEFINED DISORDER
     Dosage: 0.25 MG, ORAL
     Route: 048
  2. CABERGOLINE [Suspect]
     Indication: PARKINSON'S DISEASE
     Dosage: 0.75 MG (1 IN 1 D), ORAL
     Route: 048
     Dates: start: 20050201
  3. AKINETON [Concomitant]
  4. SYMMETREL [Concomitant]
  5. DIAZEPAM [Concomitant]
     Route: 048

REACTIONS (2)
  - CONVULSION [None]
  - INSOMNIA [None]
